FAERS Safety Report 6507594-0 (Version None)
Quarter: 2009Q4

REPORT INFORMATION
  Report Type: 
  Country: None (occurrence: None)
  Receive Date: 20091221
  Receipt Date: 20090325
  Transmission Date: 20100525
  Serious: No
  Sender: FDA-Public Use
  Company Number: US-BRISTOL-MYERS SQUIBB COMPANY-14562227

PATIENT
  Age: 36 Year
  Sex: Male
  Weight: 119 kg

DRUGS (3)
  1. PRAVACHOL [Suspect]
     Dates: start: 20070901, end: 20071101
  2. TRICOR [Suspect]
     Indication: BLOOD TRIGLYCERIDES
     Dosage: APR-MAY07,SEP07-NOV07. TRICOR 145MG TAB, 145MG, 1IN1DAY.6JAN-13JAN,15JAN-22JAN09
     Dates: start: 20070401
  3. LIPITOR [Suspect]
     Dates: start: 20070401, end: 20070501

REACTIONS (6)
  - ABDOMINAL PAIN [None]
  - DIARRHOEA [None]
  - DYSPNOEA EXERTIONAL [None]
  - EXERCISE TOLERANCE DECREASED [None]
  - MYALGIA [None]
  - NOCTURNAL DYSPNOEA [None]
